FAERS Safety Report 7025078-0 (Version None)
Quarter: 2010Q4

REPORT INFORMATION
  Report Type: 
  Country: None (occurrence: None)
  Receive Date: 20101001
  Receipt Date: 20100927
  Transmission Date: 20110411
  Serious: Yes (Hospitalization)
  Sender: FDA-Public Use
  Company Number: FR-SANOFI-AVENTIS-2010SA047206

PATIENT
  Age: 66 Year
  Sex: Female
  Weight: 78 kg

DRUGS (8)
  1. LANTUS [Suspect]
     Indication: INTENTIONAL OVERDOSE
     Route: 058
     Dates: start: 20100805, end: 20100805
  2. LANTUS [Suspect]
     Route: 058
     Dates: start: 20100805, end: 20100805
  3. LANTUS [Suspect]
     Route: 058
     Dates: end: 20100806
  4. LANTUS [Suspect]
     Route: 058
     Dates: end: 20100806
  5. KARDEGIC [Concomitant]
     Route: 048
  6. OMEPRAZOLE [Concomitant]
     Route: 048
  7. VERAPAMIL [Concomitant]
     Route: 048
  8. TAHOR [Concomitant]
     Route: 048

REACTIONS (2)
  - HYPOGLYCAEMIA [None]
  - INTENTIONAL OVERDOSE [None]
